FAERS Safety Report 9541103 (Version 3)
Quarter: 2013Q4

REPORT INFORMATION
  Report Type: Spontaneous
  Country: US (occurrence: US)
  Receive Date: 20130923
  Receipt Date: 20131011
  Transmission Date: 20140711
  Serious: Yes (Hospitalization, Disabling, Other)
  Sender: FDA-Public Use
  Company Number: US-009507513-1309USA006262

PATIENT
  Age: 51 Year
  Sex: Male

DRUGS (2)
  1. REBETOL [Suspect]
     Indication: HEPATITIS C
     Dosage: UNK
     Route: 048
     Dates: start: 20040101, end: 20040601
  2. PEGASYS [Suspect]
     Indication: HEPATITIS C
     Dosage: UNK
     Dates: start: 20040101, end: 20040601

REACTIONS (13)
  - Haemorrhagic stroke [Unknown]
  - Road traffic accident [Unknown]
  - Hip fracture [Unknown]
  - Hip arthroplasty [Unknown]
  - Drug ineffective [Unknown]
  - Aphagia [Unknown]
  - Thinking abnormal [Unknown]
  - Alopecia [Unknown]
  - Hair disorder [Unknown]
  - Decreased appetite [Unknown]
  - Bone disorder [Unknown]
  - Brain injury [Unknown]
  - Memory impairment [Unknown]
